FAERS Safety Report 9419007 (Version 1)
Quarter: 2013Q3

REPORT INFORMATION
  Report Type: Spontaneous
  Country: AR (occurrence: AR)
  Receive Date: 20130725
  Receipt Date: 20130725
  Transmission Date: 20140515
  Serious: No
  Sender: FDA-Public Use
  Company Number: CHNY2013AR001562

PATIENT
  Sex: Male

DRUGS (2)
  1. LAMISIL [Suspect]
     Dosage: UNK, UNK
  2. LAMISIL [Suspect]
     Dosage: UNK, UNK

REACTIONS (1)
  - Drug dispensing error [Unknown]
